FAERS Safety Report 9855809 (Version 3)
Quarter: 2014Q1

REPORT INFORMATION
  Report Type: Report from Study
  Country: IL (occurrence: IL)
  Receive Date: 20140130
  Receipt Date: 20140213
  Transmission Date: 20141002
  Serious: Yes (Hospitalization, Other)
  Sender: FDA-Public Use
  Company Number: PHHY2014IL009511

PATIENT
  Age: 48 Year
  Sex: Female

DRUGS (1)
  1. GILENYA [Suspect]
     Indication: MULTIPLE SCLEROSIS
     Dosage: 0.5 MG, QD
     Route: 048
     Dates: start: 20130828

REACTIONS (9)
  - Multiple sclerosis relapse [Not Recovered/Not Resolved]
  - Movement disorder [Unknown]
  - Speech disorder [Recovering/Resolving]
  - Gait disturbance [Unknown]
  - Hypoaesthesia [Unknown]
  - Malaise [Unknown]
  - Chills [Unknown]
  - Dizziness [Unknown]
  - Asthenia [Recovering/Resolving]
